FAERS Safety Report 4509028-4 (Version None)
Quarter: 2004Q4

REPORT INFORMATION
  Report Type: 
  Country: None (occurrence: None)
  Receive Date: 20041119
  Receipt Date: 20041119
  Transmission Date: 20050328
  Serious: Yes (Death)
  Sender: FDA-Public Use
  Company Number: None

PATIENT
  Sex: Male
  Weight: 98 kg

DRUGS (2)
  1. ENOXAPARIN SODIUM [Suspect]
     Indication: THROMBOSIS
     Route: 058
     Dates: start: 20031103, end: 20031106
  2. HEPARIN [Concomitant]

REACTIONS (4)
  - ABDOMINAL MASS [None]
  - CARDIAC ARREST [None]
  - HAEMORRHAGE [None]
  - PROCEDURAL COMPLICATION [None]
